FAERS Safety Report 23773803 (Version 1)
Quarter: 2024Q2

REPORT INFORMATION
  Report Type: Spontaneous
  Country: FR (occurrence: FR)
  Receive Date: 20240423
  Receipt Date: 20240423
  Transmission Date: 20240717
  Serious: Yes (Other)
  Sender: FDA-Public Use
  Company Number: None

PATIENT
  Age: 64 Year
  Sex: Female

DRUGS (1)
  1. DIMETHYL FUMARATE [Suspect]
     Active Substance: DIMETHYL FUMARATE
     Indication: Multiple sclerosis
     Dosage: 480 MILLIGRAM, QD (240 MG 2 TIMES A DAY)
     Route: 048
     Dates: start: 20230127, end: 20230614

REACTIONS (2)
  - Multiple sclerosis [Recovered/Resolved]
  - Product substitution issue [Recovered/Resolved]

NARRATIVE: CASE EVENT DATE: 20230127
